FAERS Safety Report 17988063 (Version 1)
Quarter: 2020Q3

REPORT INFORMATION
  Report Type: Spontaneous
  Country: US (occurrence: US)
  Receive Date: 20200706
  Receipt Date: 20200706
  Transmission Date: 20201103
  Serious: No
  Sender: FDA-Public Use
  Company Number: None

PATIENT
  Sex: Male

DRUGS (1)
  1. EVEROLIMUS 0.75MG ROXANE [Suspect]
     Active Substance: EVEROLIMUS
     Indication: RESPIRATORY SYNCYTIAL VIRUS INFECTION
     Route: 048
     Dates: start: 202001

REACTIONS (3)
  - Adverse drug reaction [None]
  - Condition aggravated [None]
  - Lung transplant [None]
